FAERS Safety Report 26204584 (Version 1)
Quarter: 2025Q4

REPORT INFORMATION
  Report Type: Other
  Country: JP (occurrence: JP)
  Receive Date: 20251227
  Receipt Date: 20251227
  Transmission Date: 20260117
  Serious: Yes (Death, Hospitalization, Other)
  Sender: ANI
  Company Number: JP-ANIPHARMA-2024-JP-000320

PATIENT
  Age: 65 Year
  Sex: Female
  Weight: 37 kg

DRUGS (19)
  1. ANASTROZOLE [Suspect]
     Active Substance: ANASTROZOLE
     Indication: Breast cancer
     Route: 048
     Dates: start: 20190520, end: 20191211
  2. ADRIACIN [Concomitant]
     Active Substance: DOXORUBICIN HYDROCHLORIDE
     Indication: Breast cancer
     Dates: start: 20200319, end: 20200701
  3. CYCLOPHOSPHAMIDE [Concomitant]
     Active Substance: CYCLOPHOSPHAMIDE
     Indication: Breast cancer
     Dates: start: 20200319, end: 20240811
  4. TAXOL [Concomitant]
     Active Substance: PACLITAXEL
     Indication: Breast cancer
     Dates: start: 20200422, end: 20201028
  5. TRUQAP [Concomitant]
     Active Substance: CAPIVASERTIB
     Indication: Breast cancer
     Route: 048
     Dates: start: 20241112, end: 20241114
  6. DEVICE [Concomitant]
     Active Substance: DEVICE
     Indication: Product used for unknown indication
  7. FULVESTRANT [Concomitant]
     Active Substance: FULVESTRANT
     Indication: Breast cancer
     Route: 030
     Dates: start: 20191212, end: 20200120
  8. LYNPARZA [Concomitant]
     Active Substance: OLAPARIB
     Indication: Breast cancer
     Route: 048
     Dates: start: 20200217, end: 20200310
  9. VONOPRAZAN FUMARATE [Concomitant]
     Active Substance: VONOPRAZAN FUMARATE
     Indication: Product used for unknown indication
  10. OXYCONTIN [Concomitant]
     Active Substance: OXYCODONE HYDROCHLORIDE
     Indication: Product used for unknown indication
  11. ZOMETA [Concomitant]
     Active Substance: ZOLEDRONIC ACID
     Indication: Breast cancer
     Dates: start: 20190530, end: 20241023
  12. IBRANCE [Concomitant]
     Active Substance: PALBOCICLIB
     Indication: Breast cancer
     Dates: start: 20191212, end: 20220510
  13. ENHERTU [Concomitant]
     Active Substance: FAM-TRASTUZUMAB DERUXTECAN-NXKI
     Indication: Breast cancer
     Dates: start: 20240122, end: 20240407
  14. XELODA [Concomitant]
     Active Substance: CAPECITABINE
     Indication: Breast cancer
     Dates: start: 20240610, end: 20240811
  15. PACLITAXEL [Concomitant]
     Active Substance: PACLITAXEL
     Indication: Breast cancer
     Dates: start: 20240828, end: 20241023
  16. AVASTIN [Concomitant]
     Active Substance: BEVACIZUMAB
     Indication: Breast cancer
     Dates: start: 20240828, end: 20241023
  17. FASLODEX [Concomitant]
     Active Substance: FULVESTRANT
     Indication: Product used for unknown indication
  18. ANASTROZOLE [Suspect]
     Active Substance: ANASTROZOLE
     Indication: Breast cancer
     Route: 048
     Dates: start: 20201104, end: 20220510
  19. FULVESTRANT [Concomitant]
     Active Substance: FULVESTRANT
     Indication: Breast cancer
     Route: 030
     Dates: start: 20241111

REACTIONS (21)
  - Neutrophil count decreased [Unknown]
  - Nausea [Unknown]
  - Malaise [Unknown]
  - Diabetic ketoacidosis [Fatal]
  - Dehydration [Fatal]
  - Cystitis haemorrhagic [Unknown]
  - Pulmonary toxicity [Unknown]
  - Radiation pneumonitis [Unknown]
  - Monoplegia [Unknown]
  - Decreased appetite [Unknown]
  - Renal failure [Fatal]
  - Respiratory failure [Fatal]
  - Circulatory collapse [Fatal]
  - Diarrhoea [Unknown]
  - Vomiting [Recovered/Resolved]
  - Hyperglycaemia [Not Recovered/Not Resolved]
  - Thoracic vertebral fracture [Unknown]
  - Pulmonary embolism [Unknown]
  - Tumour marker increased [Unknown]
  - Insulin resistance [Not Recovered/Not Resolved]
  - Dysuria [Unknown]

NARRATIVE: CASE EVENT DATE: 20190813
